FAERS Safety Report 5940435-9 (Version None)
Quarter: 2008Q4

REPORT INFORMATION
  Report Type: 
  Country: None (occurrence: None)
  Receive Date: 20081103
  Receipt Date: 20081103
  Transmission Date: 20090506
  Serious: Yes (Other)
  Sender: FDA-Public Use
  Company Number: None

PATIENT
  Age: 52 Year
  Sex: Female
  Weight: 72.5755 kg

DRUGS (2)
  1. CVS COLD AND ALLERGY ADVAIR [Suspect]
  2. ADVAIR DISKUS 100/50 [Suspect]

REACTIONS (1)
  - MEDICATION ERROR [None]
